FAERS Safety Report 6186590-X (Version None)
Quarter: 2009Q2

REPORT INFORMATION
  Report Type: 
  Country: None (occurrence: None)
  Receive Date: 20090512
  Receipt Date: 20090508
  Transmission Date: 20091009
  Serious: Yes (Other)
  Sender: FDA-Public Use
  Company Number: CA-BRISTOL-MYERS SQUIBB COMPANY-14618136

PATIENT

DRUGS (1)
  1. AVAPRO [Suspect]

REACTIONS (1)
  - NEPHROLITHIASIS [None]
